FAERS Safety Report 24108792 (Version 1)
Quarter: 2024Q3

REPORT INFORMATION
  Report Type: Report from Study
  Country: US (occurrence: None)
  Receive Date: 20240718
  Receipt Date: 20240718
  Transmission Date: 20241017
  Serious: Yes (Other)
  Sender: ASTRAZENECA
  Company Number: 2020SE89851

PATIENT
  Age: 65 Year
  Sex: Female

DRUGS (4)
  1. BYDUREON [Suspect]
     Active Substance: EXENATIDE
     Indication: Type 2 diabetes mellitus
     Dosage: UNKNOWN, TWICE A WEEK
  2. BYDUREON [Suspect]
     Active Substance: EXENATIDE
     Indication: Weight decreased
     Dosage: UNKNOWN, TWICE A WEEK
  3. BYDUREON [Suspect]
     Active Substance: EXENATIDE
     Indication: Type 2 diabetes mellitus
     Dosage: UNKNOWN, ONCE A WEEK
  4. BYDUREON [Suspect]
     Active Substance: EXENATIDE
     Indication: Weight decreased
     Dosage: UNKNOWN, ONCE A WEEK

REACTIONS (2)
  - Cerebrovascular accident [Unknown]
  - Memory impairment [Unknown]
